FAERS Safety Report 6026257-1 (Version None)
Quarter: 2008Q4

REPORT INFORMATION
  Report Type: 
  Country: None (occurrence: None)
  Receive Date: 20081230
  Receipt Date: 20081216
  Transmission Date: 20090506
  Serious: No
  Sender: FDA-Public Use
  Company Number: 005168

PATIENT
  Age: 51 Year
  Sex: Male

DRUGS (2)
  1. PLETAL [Suspect]
     Route: 048
  2. BYASPIRIN (ASPIRIN) TABLET [Concomitant]

REACTIONS (3)
  - ANAEMIA [None]
  - GASTROINTESTINAL HAEMORRHAGE [None]
  - LARGE INTESTINE CARCINOMA [None]
